FAERS Safety Report 11292273 (Version 6)
Quarter: 2016Q1

REPORT INFORMATION
  Report Type: Spontaneous
  Country: US (occurrence: US)
  Receive Date: 20150722
  Receipt Date: 20160208
  Transmission Date: 20160525
  Serious: Yes (Hospitalization)
  Sender: FDA-Public Use
  Company Number: US-ACTELION-A-NJ2015-121030

PATIENT
  Age: 64 Year
  Sex: Female

DRUGS (2)
  1. TRACLEER [Suspect]
     Active Substance: BOSENTAN
     Indication: PULMONARY ARTERIAL HYPERTENSION
     Dosage: 125 MG, BID
     Route: 048
     Dates: start: 2010
  2. TRACLEER [Suspect]
     Active Substance: BOSENTAN
     Dosage: 125 MG, BID
     Route: 048
     Dates: start: 2010

REACTIONS (13)
  - Spinal operation [Unknown]
  - Seasonal allergy [Unknown]
  - Muscle spasms [Unknown]
  - Dyspnoea [Unknown]
  - Asthma [Unknown]
  - Cough [Unknown]
  - Spinal compression fracture [Recovering/Resolving]
  - Staphylococcal infection [Unknown]
  - Swelling [Unknown]
  - Malaise [Unknown]
  - Choking [Unknown]
  - Pain [Unknown]
  - Urinary tract infection [Unknown]
